FAERS Safety Report 14563308 (Version 15)
Quarter: 2022Q4

REPORT INFORMATION
  Report Type: Report from Study
  Country: CA (occurrence: CA)
  Receive Date: 20180222
  Receipt Date: 20221210
  Transmission Date: 20230113
  Serious: Yes (Other)
  Sender: FDA-Public Use
  Company Number: PHHY2017CA113510

PATIENT
  Age: 61 Year
  Sex: Male
  Weight: 76 kg

DRUGS (14)
  1. XOLAIR [Suspect]
     Active Substance: OMALIZUMAB
     Indication: Chronic spontaneous urticaria
     Dosage: 300 MG, EVERY 4 WEEKS
     Route: 058
     Dates: start: 20160303
  2. XOLAIR [Suspect]
     Active Substance: OMALIZUMAB
     Indication: Mastocytosis
     Dosage: UNK
     Route: 058
     Dates: start: 20171222
  3. XOLAIR [Suspect]
     Active Substance: OMALIZUMAB
     Dosage: UNK
     Route: 058
     Dates: start: 20180316
  4. XOLAIR [Suspect]
     Active Substance: OMALIZUMAB
     Dosage: UNK
     Route: 058
     Dates: start: 20190912
  5. XOLAIR [Suspect]
     Active Substance: OMALIZUMAB
     Dosage: UNK
     Route: 058
     Dates: start: 20190912
  6. XOLAIR [Suspect]
     Active Substance: OMALIZUMAB
     Dosage: 300 MG, (EVERY 4 WEEK)
     Route: 058
  7. XOLAIR [Suspect]
     Active Substance: OMALIZUMAB
     Indication: Chronic spontaneous urticaria
     Dosage: 300 MG, EVERY 4 WEEKS
     Route: 058
     Dates: start: 20160301
  8. XOLAIR [Suspect]
     Active Substance: OMALIZUMAB
     Dosage: 300 MG (EVERY 4-5 WEEKS)
     Route: 065
     Dates: start: 20220513
  9. XOLAIR [Suspect]
     Active Substance: OMALIZUMAB
     Dosage: 300 MG, EVERY 05 WEEKS
     Route: 065
  10. MONTELUKAST SODIUM [Suspect]
     Active Substance: MONTELUKAST SODIUM
     Indication: Product used for unknown indication
     Dosage: 1 DF, QD
     Route: 065
  11. CIPROFLOXACIN [Suspect]
     Active Substance: CIPROFLOXACIN
     Indication: Product used for unknown indication
     Dosage: UNK
     Route: 065
  12. EBASTINE [Concomitant]
     Active Substance: EBASTINE
     Indication: Product used for unknown indication
     Dosage: UNK, QID
     Route: 065
  13. ZADITEN [Concomitant]
     Active Substance: KETOTIFEN FUMARATE
     Indication: Product used for unknown indication
     Dosage: 1 DF, BID
     Route: 065
  14. MONTELUKAST [Concomitant]
     Active Substance: MONTELUKAST SODIUM
     Indication: Product used for unknown indication
     Dosage: 1 DOSAGE FORM, QD
     Route: 065

REACTIONS (14)
  - Vomiting [Recovered/Resolved]
  - Vertigo positional [Recovered/Resolved]
  - Diarrhoea [Recovered/Resolved]
  - Blood pressure decreased [Recovered/Resolved]
  - Weight decreased [Unknown]
  - Drug hypersensitivity [Unknown]
  - COVID-19 [Recovered/Resolved]
  - Asthma [Recovered/Resolved]
  - Dyspnoea [Unknown]
  - Cough [Unknown]
  - Pharyngeal swelling [Unknown]
  - Asthma [Unknown]
  - Off label use [Unknown]
  - Inappropriate schedule of product administration [Unknown]

NARRATIVE: CASE EVENT DATE: 20170728
